FAERS Safety Report 18571069 (Version 1)
Quarter: 2020Q4

REPORT INFORMATION
  Report Type: Spontaneous
  Country: US (occurrence: US)
  Receive Date: 20201202
  Receipt Date: 20201202
  Transmission Date: 20210114
  Serious: No
  Sender: FDA-Public Use
  Company Number: US-NOVEN PHARMACEUTICALS, INC.-2020US006172

PATIENT
  Sex: Female

DRUGS (1)
  1. AGX ESTRADIOL FOR MINIVELLE [Suspect]
     Active Substance: ESTRADIOL
     Indication: PRODUCT USED FOR UNKNOWN INDICATION
     Dosage: 0.0375 MG/ DAY, 2/WEEK
     Route: 062

REACTIONS (4)
  - Product adhesion issue [Unknown]
  - No adverse event [Unknown]
  - Product administration error [Unknown]
  - Product quality issue [Unknown]
